FAERS Safety Report 7437244-0 (Version None)
Quarter: 2011Q2

REPORT INFORMATION
  Report Type: 
  Country: None (occurrence: None)
  Receive Date: 20110426
  Receipt Date: 20110415
  Transmission Date: 20111010
  Serious: Yes (Death, Hospitalization, Other)
  Sender: FDA-Public Use
  Company Number: IT-BRISTOL-MYERS SQUIBB COMPANY-15677735

PATIENT
  Age: 82 Year
  Sex: Female

DRUGS (4)
  1. AVELOX [Suspect]
     Indication: ACUTE TONSILLITIS
     Dosage: AVALOX 400MG FILM COATED TABS 1DF:1 UNIT
     Dates: start: 20090805
  2. MOXIFLOXACIN [Suspect]
  3. COUMADIN [Suspect]
     Indication: ATRIAL FIBRILLATION
     Dosage: 1DF:1 UNIT
     Dates: start: 20090505, end: 20090805
  4. TAPAZOLE [Suspect]
     Indication: THYROID DISORDER
     Dosage: TAPAZOLE 5MG TABS 1DF:1 UNIT
     Dates: start: 20090505, end: 20090805

REACTIONS (6)
  - AGRANULOCYTOSIS [None]
  - HEPATITIS ACUTE [None]
  - RENAL FAILURE ACUTE [None]
  - TONSILLITIS [None]
  - METABOLIC ACIDOSIS [None]
  - SPLENIC INFARCTION [None]
